FAERS Safety Report 8834294 (Version 3)
Quarter: 2012Q4

REPORT INFORMATION
  Report Type: Spontaneous
  Country: US (occurrence: None)
  Receive Date: 20121009
  Receipt Date: 20121022
  Transmission Date: 20130627
  Serious: Yes (Other)
  Sender: FDA-Public Use
  Company Number: 2012SA070399

PATIENT
  Age: 47 Year
  Sex: Female
  Weight: 52.16 kg

DRUGS (4)
  1. GOLD BOND ORIGINAL STRENGTH POWDER [Suspect]
     Indication: SWEATING
     Dates: start: 2007, end: 2007
  2. GOLD BOND ORIGINAL STRENGTH POWDER [Suspect]
     Indication: FEELING HOT
     Dates: start: 2007, end: 2007
  3. ST. JOHN^S WORT [Concomitant]
  4. CITALOPRAM [Concomitant]

REACTIONS (11)
  - Vulvovaginal pruritus [None]
  - Application site pain [None]
  - Genital disorder female [None]
  - Vulval disorder [None]
  - Dyspareunia [None]
  - Lichen sclerosus [None]
  - Blood blister [None]
  - Chemical injury [None]
  - Scar [None]
  - Anxiety [None]
  - Application site bruise [None]
